FAERS Safety Report 7587083-5 (Version None)
Quarter: 2011Q3

REPORT INFORMATION
  Report Type: 
  Country: None (occurrence: None)
  Receive Date: 20110701
  Receipt Date: 20110620
  Transmission Date: 20111222
  Serious: Yes (Other)
  Sender: FDA-Public Use
  Company Number: PHHY2011US54447

PATIENT
  Sex: Male

DRUGS (6)
  1. NORVASC [Concomitant]
     Dosage: 5 MG, UNK
     Route: 048
  2. GLEEVEC [Suspect]
     Dosage: 1 DF, EVERY DAY
     Route: 048
  3. METFORMIN HCL [Concomitant]
     Dosage: 500 MG, UNK
  4. HYDROCHLOROTHIAZID [Concomitant]
     Dosage: 12.5 MG, UNK
  5. CIALIS [Concomitant]
     Dosage: 5 MG, UNK
  6. DIOVAN [Concomitant]
     Dosage: 160 MG, UNK

REACTIONS (2)
  - DIABETES MELLITUS [None]
  - ERECTILE DYSFUNCTION [None]
